FAERS Safety Report 17077744 (Version 4)
Quarter: 2020Q4

REPORT INFORMATION
  Report Type: Spontaneous
  Country: US (occurrence: US)
  Receive Date: 20191126
  Receipt Date: 20201210
  Transmission Date: 20210113
  Serious: Yes (Hospitalization, Other)
  Sender: FDA-Public Use
  Company Number: US-AMGEN-USASP2019192535

PATIENT
  Age: 62 Year
  Sex: Male

DRUGS (15)
  1. RIFAXIMIN. [Concomitant]
     Active Substance: RIFAXIMIN
     Dosage: 550 MILLIGRAM, BID
  2. FAMOTIDINE. [Concomitant]
     Active Substance: FAMOTIDINE
     Dosage: 40 MILLIGRAM, QD
     Route: 065
  3. POTASSIUM CITRATE. [Concomitant]
     Active Substance: POTASSIUM CITRATE
     Dosage: 10 MILLIEQUIVALENT, BID
  4. PROLIA [Suspect]
     Active Substance: DENOSUMAB
     Indication: OSTEOPOROTIC FRACTURE
     Dosage: 60 MILLIGRAM, Q6MO
     Route: 065
     Dates: start: 201405
  5. CALCIUM/VITAMIN D [CALCIUM;ERGOCALCIFEROL] [Concomitant]
     Dosage: 600/400 MILLIGRAM; 6 TABLETS BID
     Route: 065
  6. COPPER GLUCONATE [Concomitant]
     Active Substance: COPPER GLUCONATE
     Dosage: 2 MILLIGRAM, QD
     Route: 065
  7. CYANOCOBALAMIN. [Concomitant]
     Active Substance: CYANOCOBALAMIN
     Dosage: 0.4 MILLILITER, QWK
     Route: 030
  8. FERROUS GLUCONATE [Concomitant]
     Active Substance: FERROUS GLUCONATE
     Dosage: 246 MILLIGRAM, BID
     Route: 065
  9. VITAMIN E [Concomitant]
     Active Substance: .ALPHA.-TOCOPHEROL
     Dosage: 400 UNIT, QD
     Route: 065
  10. MULTIVITAMIN AND MINERAL [Concomitant]
     Active Substance: MINERALS\VITAMINS
     Dosage: UNK UNK, QD
     Route: 065
  11. MESALAMINE. [Concomitant]
     Active Substance: MESALAMINE
     Dosage: 500 MILLIGRAM; 4 CAPS BID
  12. CHOLECALCIFEROL [Concomitant]
     Active Substance: CHOLECALCIFEROL
     Dosage: 10000 INTERNATIONAL UNIT, BID
     Route: 065
  13. MAGNESIUM [Concomitant]
     Active Substance: MAGNESIUM
     Dosage: 100 MILLIGRAM, TID
  14. PHYTONADIONE. [Concomitant]
     Active Substance: PHYTONADIONE
     Dosage: 5 MILLIGRAM; 4 TABLETS DAILY
  15. ZINC SULFATE. [Concomitant]
     Active Substance: ZINC SULFATE
     Dosage: 220 MILLIGRAM, QD
     Route: 065

REACTIONS (6)
  - Atypical fracture [Recovering/Resolving]
  - Weight decreased [Unknown]
  - Mobility decreased [Unknown]
  - Hypophosphataemia [Unknown]
  - Bone density decreased [Unknown]
  - Asthenia [Unknown]

NARRATIVE: CASE EVENT DATE: 201909
